FAERS Safety Report 20703608 (Version 2)
Quarter: 2022Q2

REPORT INFORMATION
  Report Type: Spontaneous
  Country: FR (occurrence: FR)
  Receive Date: 20220413
  Receipt Date: 20220614
  Transmission Date: 20220721
  Serious: Yes (Other)
  Sender: FDA-Public Use
  Company Number: FR-ADVANZ PHARMA-202203002131

PATIENT

DRUGS (49)
  1. HYDROXYCHLOROQUINE SULFATE [Suspect]
     Active Substance: HYDROXYCHLOROQUINE SULFATE
     Indication: Rheumatoid arthritis
     Dosage: 1 DOSAGE FORM, BID
     Route: 065
  2. HYDROXYCHLOROQUINE SULFATE [Suspect]
     Active Substance: HYDROXYCHLOROQUINE SULFATE
     Dosage: 2 DOSAGE FORM, QD (TAKE 1 TABLET MORNING AND EVENING)
  3. HYDROXYCHLOROQUINE SULFATE [Suspect]
     Active Substance: HYDROXYCHLOROQUINE SULFATE
     Dosage: 2 DOSAGE FORM, QD (TAKE 1 TABLET MORNING AND EVENING)
  4. HYDROXYCHLOROQUINE SULFATE [Suspect]
     Active Substance: HYDROXYCHLOROQUINE SULFATE
     Dosage: UNK
     Dates: start: 20110617
  5. SALAZOPYRINE [Concomitant]
     Active Substance: SULFASALAZINE
     Indication: Impaired gastric emptying
     Dosage: UNK
  6. SALAZOPYRINE [Concomitant]
     Active Substance: SULFASALAZINE
     Dosage: 1 DOSAGE FORM, QD
  7. SALAZOPYRINE [Concomitant]
     Active Substance: SULFASALAZINE
     Dosage: 1 DOSAGE FORM, BID (1 TABLET MORNING  AND 1 IN EVENING)
  8. SALAZOPYRINE [Concomitant]
     Active Substance: SULFASALAZINE
     Dosage: 2 DOSAGE FORM, BID (2 TABLETS MORNING AND EVENING)
  9. SALAZOPYRINE [Concomitant]
     Active Substance: SULFASALAZINE
     Dosage: 2 DOSAGE FORM, BID (TAKE 2 TABLETS  MORNING AND EVENING)
  10. SALAZOPYRINE [Concomitant]
     Active Substance: SULFASALAZINE
     Dosage: 2 G, BID
  11. SALAZOPYRINE [Concomitant]
     Active Substance: SULFASALAZINE
     Dosage: 2 GRAM PER LITRE, BID
     Dates: start: 20110617
  12. SALAZOPYRINE [Concomitant]
     Active Substance: SULFASALAZINE
     Dosage: 1 G, QD, REINTRODUCE
  13. PREDNISONE [Concomitant]
     Active Substance: PREDNISONE
     Dosage: 30 MG
  14. PREDNISONE [Concomitant]
     Active Substance: PREDNISONE
     Dosage: 12 MG, QD (8-0-4)
  15. PREDNISONE [Concomitant]
     Active Substance: PREDNISONE
     Dosage: 1 DOSAGE FORM, QD (1 TABLET IN THE MORNING)
  16. PREDNISONE [Concomitant]
     Active Substance: PREDNISONE
     Dosage: 10 MG, QD (10 MG PER DAY IN TWO DOSES)
  17. PREDNISONE [Concomitant]
     Active Substance: PREDNISONE
     Dosage: 1 DOSAGE FORM, QD (1 TABLET IN THE MORNING)
  18. PREDNISONE [Concomitant]
     Active Substance: PREDNISONE
     Dosage: 10 MG, QD (10 MG/DAY)
  19. PREDNISONE [Concomitant]
     Active Substance: PREDNISONE
     Dosage: 1 DOSAGE FORM, BID (1 TABLET MORNING AND EVENING)
  20. PREDNISONE [Concomitant]
     Active Substance: PREDNISONE
     Dosage: 10 MG, QD
  21. PREDNISONE [Concomitant]
     Active Substance: PREDNISONE
     Dosage: 8 MG (WITHIN 1 MONTH)
  22. PREDNISONE [Concomitant]
     Active Substance: PREDNISONE
     Dosage: 1 DOSAGE FORM, BID (TAKE 1 TABLET MORNING AND EVENING)
  23. PREDNISONE [Concomitant]
     Active Substance: PREDNISONE
     Dosage: 8 MG, QD
  24. PREDNISONE [Concomitant]
     Active Substance: PREDNISONE
     Dosage: 12 MG, QD
  25. PREDNISONE [Concomitant]
     Active Substance: PREDNISONE
     Dosage: 10 MG, QD DURING PREGNANCY
  26. PREDNISONE [Concomitant]
     Active Substance: PREDNISONE
     Dosage: 2 DOSAGE FORM, QD (2 TABLETS IN THE MORNING)
  27. PREDNISONE [Concomitant]
     Active Substance: PREDNISONE
     Dosage: 8 MG, QD
  28. PREDNISONE [Concomitant]
     Active Substance: PREDNISONE
     Dosage: 12 MG, QD
     Dates: start: 20120605
  29. PREDNISONE [Concomitant]
     Active Substance: PREDNISONE
     Dosage: 10 MG, QD
     Dates: start: 20120605
  30. PREDNISONE [Concomitant]
     Active Substance: PREDNISONE
     Dosage: 5 MG, QD
     Dates: start: 20120605
  31. PREDNISONE [Concomitant]
     Active Substance: PREDNISONE
     Dosage: 1 DOSAGE FORM, QD
  32. PREDNISONE [Concomitant]
     Active Substance: PREDNISONE
     Dosage: 1 DOSAGE FORM, QD
  33. PREDNISONE [Concomitant]
     Active Substance: PREDNISONE
     Dosage: 1 DOSAGE FORM, QD
  34. PREDNISONE [Concomitant]
     Active Substance: PREDNISONE
     Dosage: 7 DOSAGE FORM, QD (TAKE 3 TABLETS IN THE MORNING, 4 AT BEDTIME)
  35. PREDNISONE [Concomitant]
     Active Substance: PREDNISONE
     Dosage: 4 DOSAGE FORM, QD (4 TABLETS AT BEDTIME)
  36. PREDNISONE [Concomitant]
     Active Substance: PREDNISONE
     Dosage: 2 DOSAGE FORM, QD (TAKE 2 TABLETS IN THE MORNING)
  37. PREDNISONE [Concomitant]
     Active Substance: PREDNISONE
     Dosage: 2 DOSAGE FORM, QD (TAKE 2 TABLETS IN THE MORNING)
  38. PREDNISONE [Concomitant]
     Active Substance: PREDNISONE
     Dosage: 4 DOSAGE FORM, QD (TAKE 4 TABLETS PER DAY)
  39. DAFALGAN [Concomitant]
     Active Substance: ACETAMINOPHEN
     Dosage: 1 DOSAGE FORM, BID (1 TABLET IN THE MORNING, AT NOON, AT 16 :00 AND IN THE EVENING)
  40. DAFALGAN [Concomitant]
     Active Substance: ACETAMINOPHEN
     Dosage: 1 DOSAGE FORM, BID (1 TABLET IN THE MORNING, AT NOON, AT 16 :00 AND IN THE EVENING)
  41. DAFALGAN [Concomitant]
     Active Substance: ACETAMINOPHEN
     Dosage: 1 DOSAGE FORM, BID (1 TABLET IN THE MORNING, AT NOON, AT 16 :00 AND IN THE EVENING)
  42. DAFALGAN [Concomitant]
     Active Substance: ACETAMINOPHEN
     Dosage: 4 G, QD
  43. DAFALGAN [Concomitant]
     Active Substance: ACETAMINOPHEN
     Dosage: 1 DOSAGE FORM, BID (TAKE 1 TABLET IN THE MORNING, AT NOON, AT 16 :00 AND IN THE EVENING)
  44. DAFALGAN [Concomitant]
     Active Substance: ACETAMINOPHEN
     Dosage: 1 DOSAGE FORM, BID (1 TABLET IN THE MORNING, AT NOON, AT 16 :00 AND IN THE EVENING)
  45. ENBREL [Concomitant]
     Active Substance: ETANERCEPT
     Dosage: 50 MG, WEEKLY
     Dates: start: 201209
  46. ENBREL [Concomitant]
     Active Substance: ETANERCEPT
     Dosage: 1 DOSAGE FORM, WEEKLY
  47. METHOTREXATE [Concomitant]
     Active Substance: METHOTREXATE
     Dosage: UNK
  48. METHOTREXATE [Concomitant]
     Active Substance: METHOTREXATE
     Dosage: 15 MG, WEEKLY (6 TABLET PER WEEK ON A GIVEN DAY ON MONDAY)
  49. METHOTREXATE [Concomitant]
     Active Substance: METHOTREXATE
     Dosage: 6 DOSAGE FORM, WEEKLY ( 6 TABLETS PER WEEK ON A GIVEN DAY ON MONDAY)

REACTIONS (8)
  - Abortion spontaneous [Not Recovered/Not Resolved]
  - Foetal growth restriction [Unknown]
  - Malaise [Unknown]
  - Musculoskeletal stiffness [Unknown]
  - Middle insomnia [Unknown]
  - Chest pain [Unknown]
  - Exposure during pregnancy [Unknown]
  - Drug ineffective [Unknown]

NARRATIVE: CASE EVENT DATE: 20090901
